FAERS Safety Report 16246204 (Version 1)
Quarter: 2019Q2

REPORT INFORMATION
  Report Type: Report from Study
  Country: US (occurrence: US)
  Receive Date: 20190426
  Receipt Date: 20190426
  Transmission Date: 20190711
  Serious: Yes (Other)
  Sender: FDA-Public Use
  Company Number: US-GILEAD-2019-0404625

PATIENT
  Age: 69 Year
  Sex: Male

DRUGS (2)
  1. SOFOSBUVIR W/VELPATASVIR [Suspect]
     Active Substance: SOFOSBUVIR\VELPATASVIR
     Indication: CHRONIC HEPATITIS C
     Dosage: 1 DOSAGE FORM, QD
     Route: 048
     Dates: start: 20190409
  2. ZOSTAVAX [Concomitant]
     Active Substance: VARICELLA-ZOSTER VIRUS STRAIN OKA/MERCK LIVE ANTIGEN
     Dosage: UNKNOWN
     Dates: start: 20190419, end: 20190419

REACTIONS (3)
  - Malaise [Not Recovered/Not Resolved]
  - Vomiting projectile [Not Recovered/Not Resolved]
  - Nephrolithiasis [Not Recovered/Not Resolved]

NARRATIVE: CASE EVENT DATE: 201904
